FAERS Safety Report 8806883 (Version 1)
Quarter: 2012Q4

REPORT INFORMATION
  Report Type: 
  Country: US (occurrence: US)
  Receive Date: 20120925
  Receipt Date: 20120925
  Transmission Date: 20130627
  Serious: No
  Sender: FDA-Public Use
  Company Number: US-B.I. PHARMACEUTICALS,INC./RIDGEFIELD-2012-BP-23135BP

PATIENT
  Age: 55 Year
  Sex: Female
  Weight: 53 kg

DRUGS (6)
  1. SPIRIVA [Suspect]
     Indication: ASTHMA
     Dosage: 18 mcg
     Route: 055
     Dates: start: 20120916
  2. ALBUTEROL [Concomitant]
     Indication: ASTHMA
     Dates: start: 2006
  3. CLARITIN [Concomitant]
     Indication: SEASONAL ALLERGY
     Dosage: 10 mg
     Route: 048
     Dates: start: 2007
  4. PEPCID [Concomitant]
     Indication: GASTROOESOPHAGEAL REFLUX DISEASE
     Dates: start: 2007
  5. HYDROCHLOROTHIAZIDE [Concomitant]
     Indication: HYPERTENSION
     Dosage: 25 mg
     Route: 048
     Dates: start: 2012
  6. ADVAIR [Concomitant]
     Indication: ASTHMA
     Dosage: 1000 mg
     Route: 055
     Dates: start: 2007

REACTIONS (2)
  - Myalgia [Recovered/Resolved]
  - Neck pain [Recovered/Resolved]
